FAERS Safety Report 8421266-7 (Version None)
Quarter: 2012Q2

REPORT INFORMATION
  Report Type: 
  Country: None (occurrence: None)
  Receive Date: 20120608
  Receipt Date: 20120604
  Transmission Date: 20120825
  Serious: Yes (Hospitalization)
  Sender: FDA-Public Use
  Company Number: FR-PFIZER INC-2012133291

PATIENT
  Age: 78 Year
  Sex: Female

DRUGS (11)
  1. LASIX [Concomitant]
     Route: 048
  2. AROMASIN [Suspect]
     Indication: BREAST CANCER
     Dosage: UNK
     Route: 048
     Dates: start: 20110701
  3. ASPIRIN [Concomitant]
     Route: 048
  4. DILTIAZEM HCL [Concomitant]
     Route: 048
  5. POTASSIUM CHLORIDE [Concomitant]
     Route: 048
  6. NEXIUM [Concomitant]
     Route: 048
  7. ALENDRONATE SODIUM [Concomitant]
     Route: 048
  8. PLAVIX [Concomitant]
     Route: 048
  9. PROCORALAN [Concomitant]
     Route: 048
  10. CRESTOR [Concomitant]
     Route: 048
  11. HERCEPTIN [Suspect]
     Indication: BREAST CANCER
     Dosage: UNK
     Route: 042
     Dates: start: 20110701, end: 20110801

REACTIONS (2)
  - DYSPNOEA [None]
  - PLEURAL EFFUSION [None]
